FAERS Safety Report 9904869 (Version 3)
Quarter: 2014Q1

REPORT INFORMATION
  Report Type: Spontaneous
  Country: CH (occurrence: CH)
  Receive Date: 20140218
  Receipt Date: 20140311
  Transmission Date: 20141002
  Serious: Yes (Life-Threatening, Hospitalization)
  Sender: FDA-Public Use
  Company Number: CH-PFIZER INC-2014040996

PATIENT
  Age: 70 Year
  Sex: Male
  Weight: 78 kg

DRUGS (17)
  1. EFEXOR ER [Suspect]
     Indication: DEPRESSION
     Dosage: 75 MG, 1X/DAY
     Route: 048
     Dates: end: 20140128
  2. TRAMAL [Interacting]
     Indication: ANALGESIC THERAPY
     Dosage: 20 GTT (=50 MG), AS NEEDED
     Route: 048
     Dates: start: 20140118, end: 20140124
  3. FENTANYL ^JANSSEN^ [Interacting]
     Indication: ANALGESIC THERAPY
     Dosage: 12.5 UG, AS NEEDED
     Route: 040
     Dates: start: 20140117, end: 20140124
  4. BELOC ZOK [Concomitant]
     Dosage: 100 MG (75 MG IN THE MORNING, 25 MG AT NOON), DAILY
     Route: 048
  5. RAPAMUNE [Concomitant]
     Dosage: 2 MG, 1X/DAY
     Route: 048
  6. SPIRICORT [Concomitant]
     Dosage: 22.5 MG, 1X/DAY
     Route: 048
  7. NEXIUM MUPS [Concomitant]
     Indication: GASTRITIS PROPHYLAXIS
     Dosage: 20 MG, 1X/DAY
     Route: 048
  8. ROCALTROL [Concomitant]
     Dosage: 0.25 UG, 1X/DAY
     Route: 048
  9. ZYLORIC ^FRESENIUS^ [Concomitant]
     Dosage: 100 MG, 1X/DAY
     Route: 048
  10. BENERVA [Concomitant]
     Dosage: 300 MG, 1X/DAY
     Route: 048
  11. CALCIMAGON-D3 [Concomitant]
     Dosage: 1 DF (1000 MG CALCIUM CARBONATE AND 800 UNITS CHOLECALCIFEROL), 2X/DAY
  12. AMPHO-MORONAL [Concomitant]
     Dosage: 1 ML, 4X/DAY
     Route: 048
  13. LAXOBERON [Concomitant]
     Dosage: 10 GTT, 1X/DAY
     Route: 048
  14. PRADIF [Concomitant]
     Dosage: 400 UG, 1X/DAY
     Route: 048
  15. CEFEPIME ORPHA [Concomitant]
     Dosage: 1 G, 1X/DAY
     Route: 041
     Dates: start: 20140129
  16. VANCOCIN [Concomitant]
     Dosage: 1 G, 1X/DAY
     Route: 041
     Dates: start: 20140129
  17. CALCIPARIN [Concomitant]
     Dosage: 0.2 ML (=5000 IU), 2X/DAY
     Route: 058

REACTIONS (3)
  - Drug interaction [Recovered/Resolved]
  - Serotonin syndrome [Recovering/Resolving]
  - Antidepressant drug level increased [Recovering/Resolving]
